FAERS Safety Report 4920009-9 (Version None)
Quarter: 2006Q1

REPORT INFORMATION
  Report Type: 
  Country: None (occurrence: None)
  Receive Date: 20060217
  Receipt Date: 20060203
  Transmission Date: 20060701
  Serious: Yes (Other)
  Sender: FDA-Public Use
  Company Number: DSA_27628_2006

PATIENT
  Age: 26 Year
  Sex: Male

DRUGS (6)
  1. ENALAPRIL MALEATE [Suspect]
     Indication: GLOMERULONEPHRITIS
     Dosage: 5 MG BID PO
     Route: 048
     Dates: start: 19940323, end: 20051101
  2. ENALAPRIL MALEATE [Suspect]
     Indication: HYPERTENSION
     Dosage: 5 MG BID PO
     Route: 048
     Dates: start: 19940323, end: 20051101
  3. XANEF [Suspect]
     Indication: GLOMERULONEPHRITIS
     Dosage: DF
     Dates: start: 19940323, end: 20051101
  4. XANEF [Suspect]
     Indication: HYPERTENSION
     Dosage: DF
     Dates: start: 19940323, end: 20051101
  5. BENALAPRIL [Suspect]
     Indication: GLOMERULONEPHRITIS
     Dosage: DF
     Dates: start: 19940323, end: 20051101
  6. BENALAPRIL [Suspect]
     Indication: HYPERTENSION
     Dosage: DF
     Dates: start: 19940323, end: 20051101

REACTIONS (2)
  - ADRENAL INSUFFICIENCY [None]
  - SOMATOFORM DISORDER [None]
